FAERS Safety Report 4877491-5 (Version None)
Quarter: 2006Q1

REPORT INFORMATION
  Report Type: 
  Country: None (occurrence: None)
  Receive Date: 20060111
  Receipt Date: 20060109
  Transmission Date: 20060701
  Serious: Yes (Death, Hospitalization)
  Sender: FDA-Public Use
  Company Number: US-SANOFI-SYNTHELABO-F03200600003

PATIENT
  Age: 74 Year
  Sex: Female

DRUGS (10)
  1. OXALIPLATIN [Suspect]
     Indication: BILE DUCT CANCER
     Route: 042
     Dates: start: 20051212, end: 20051212
  2. CAPECITABINE [Suspect]
     Indication: BILE DUCT CANCER
     Route: 048
     Dates: start: 20051212
  3. EVISTA [Concomitant]
     Dosage: UNK
     Route: 048
  4. PROTONIX [Concomitant]
     Dosage: UNK
     Route: 048
  5. CITRACAL WITH VITAMIN D [Concomitant]
     Dosage: UNK
     Route: 048
  6. LORAZEPAM [Concomitant]
     Dosage: UNK
     Route: 065
  7. CELEXA [Concomitant]
     Dosage: UNK
     Route: 048
  8. IMODIUM [Concomitant]
     Dosage: UNK
     Route: 048
  9. COMPAZINE [Concomitant]
     Dosage: UNK
     Route: 065
  10. ZOFRAN [Concomitant]
     Dosage: UNK
     Route: 065

REACTIONS (4)
  - DEATH [None]
  - DEHYDRATION [None]
  - DISEASE PROGRESSION [None]
  - PELVIC MASS [None]
